FAERS Safety Report 8338519-3 (Version None)
Quarter: 2012Q2

REPORT INFORMATION
  Report Type: 
  Country: None (occurrence: None)
  Receive Date: 20120504
  Receipt Date: 20120430
  Transmission Date: 20120825
  Serious: Yes (Hospitalization, Other)
  Sender: FDA-Public Use
  Company Number: CA-ABBOTT-12P-028-0927394-00

PATIENT
  Sex: Male
  Weight: 77.18 kg

DRUGS (4)
  1. FRAXIPARINE [Concomitant]
     Indication: PRODUCT USED FOR UNKNOWN INDICATION
  2. LUPRON DEPOT [Suspect]
     Indication: PROSTATE CANCER
     Route: 030
     Dates: start: 20110401
  3. BICALUTAMIDE [Suspect]
     Indication: PROSTATE CANCER
  4. CHEMOTHERAPY [Suspect]
     Indication: PROSTATE CANCER

REACTIONS (3)
  - THROMBOSIS [None]
  - FALL [None]
  - PULMONARY EMBOLISM [None]
